FAERS Safety Report 10442394 (Version 1)
Quarter: 2014Q3

REPORT INFORMATION
  Report Type: Spontaneous
  Country: US (occurrence: None)
  Receive Date: 20140908
  Receipt Date: 20140908
  Transmission Date: 20150326
  Serious: Yes (Death, Hospitalization)
  Sender: FDA-Public Use
  Company Number: DAV-AE-MTX-14-46

PATIENT
  Age: 19 Year
  Sex: Female

DRUGS (6)
  1. CYCLOPHOSPHAMIDE. [Concomitant]
     Active Substance: CYCLOPHOSPHAMIDE
  2. CLOFARABINE [Concomitant]
     Active Substance: CLOFARABINE
  3. ETOPOSIDE. [Concomitant]
     Active Substance: ETOPOSIDE
  4. HYDROCORTISONE. [Concomitant]
     Active Substance: HYDROCORTISONE
  5. METHOTREXATE [Suspect]
     Active Substance: METHOTREXATE
     Indication: ACUTE LYMPHOCYTIC LEUKAEMIA
     Dosage: UNK, BIWEEKLY, INTRATHECAL
  6. CYTARABINE. [Concomitant]
     Active Substance: CYTARABINE

REACTIONS (8)
  - Systemic candida [None]
  - Respiratory alkalosis [None]
  - Sinusitis [None]
  - Hyperammonaemia [None]
  - Encephalopathy [None]
  - Gastrointestinal haemorrhage [None]
  - Enterobacter bacteraemia [None]
  - Aspiration [None]
